FAERS Safety Report 6153415-8 (Version None)
Quarter: 2009Q2

REPORT INFORMATION
  Report Type: 
  Country: None (occurrence: None)
  Receive Date: 20090413
  Receipt Date: 20090409
  Transmission Date: 20091009
  Serious: No
  Sender: FDA-Public Use
  Company Number: US-B.I. PHARMACEUTICALS,INC./RIDGEFIELD-2009-BP-04509BP

PATIENT
  Age: 53 Year
  Sex: Male

DRUGS (15)
  1. ATROVENT HFA [Suspect]
     Indication: EMPHYSEMA
     Dosage: 102MCG
     Route: 055
     Dates: start: 20081010
  2. ATROVENT HFA [Suspect]
     Indication: BRONCHITIS
  3. ZANTAC 150 [Suspect]
     Indication: DYSPEPSIA
     Route: 048
  4. HYDROCHLOROTHIAZIDE [Concomitant]
     Route: 048
  5. LISINOPRIL [Concomitant]
     Route: 048
  6. FERROUS SULFATE TAB [Concomitant]
     Route: 048
  7. CARVEDILOL [Concomitant]
     Route: 048
  8. FUROSEMIDE [Concomitant]
     Route: 048
  9. WARFARIN SODIUM [Concomitant]
     Route: 048
  10. HYDROXYZINE [Concomitant]
     Route: 048
  11. PAROXETINE HCL [Concomitant]
     Route: 048
  12. DIVALPROEX SODIUM [Concomitant]
     Route: 048
  13. PROZAPINE [Concomitant]
     Route: 048
  14. ABILIFY [Concomitant]
     Route: 048
  15. NITROGLYCERIN [Concomitant]
     Route: 048

REACTIONS (1)
  - URINE AMPHETAMINE POSITIVE [None]
